FAERS Safety Report 7973236-0 (Version None)
Quarter: 2011Q4

REPORT INFORMATION
  Report Type: 
  Country: None (occurrence: None)
  Receive Date: 20111213
  Receipt Date: 20111207
  Transmission Date: 20120403
  Serious: Yes (Death, Hospitalization)
  Sender: FDA-Public Use
  Company Number: PHFR2011GB02822

PATIENT
  Sex: Female
  Weight: 40 kg

DRUGS (10)
  1. CLOZARIL [Suspect]
     Indication: SCHIZOPHRENIA
     Dosage: 750 MG/DAY
     Route: 048
     Dates: start: 20090529
  2. LANSOPRAZOLE [Concomitant]
     Dosage: 30 MG, QID
     Route: 048
  3. CLOZARIL [Suspect]
     Dosage: 300 MG, DAILY
     Route: 048
  4. DEPAKOTE [Concomitant]
     Indication: SCHIZOPHRENIA
     Dosage: 500 MG, BID
     Route: 048
  5. NUTRITION SUPPLEMENTS [Concomitant]
     Dosage: 200 ML, QID
     Route: 048
  6. TINZAPARIN [Concomitant]
     Dosage: 3500 U, BID
  7. ZUCLOPENTHIXOL [Concomitant]
     Indication: SCHIZOPHRENIA
     Dosage: 50 MG/DAY
     Route: 048
  8. PROMETHAZINE [Concomitant]
     Indication: SCHIZOPHRENIA
     Dosage: 25 MG, BID
     Route: 048
  9. PROCYCLIDINE HYDROCHLORIDE 2MG TAB [Concomitant]
     Indication: SCHIZOPHRENIA
     Dosage: 5 MG, BID
     Route: 048
  10. ACETAMINOPHEN [Concomitant]
     Dosage: 500 MG, BID
     Route: 048

REACTIONS (9)
  - URINARY TRACT INFECTION [None]
  - LUNG ADENOCARCINOMA [None]
  - FALL [None]
  - HEAD INJURY [None]
  - HAEMORRHAGE [None]
  - VOMITING [None]
  - LUNG CANCER METASTATIC [None]
  - HAEMOGLOBIN DECREASED [None]
  - NAUSEA [None]
